FAERS Safety Report 22170482 (Version 1)
Quarter: 2023Q2

REPORT INFORMATION
  Report Type: Spontaneous
  Country: US (occurrence: US)
  Receive Date: 20230404
  Receipt Date: 20230404
  Transmission Date: 20230722
  Serious: Yes (Death, Other)
  Sender: FDA-Public Use
  Company Number: US-MYLANLABS-2023M1035607

PATIENT
  Age: 33 Year
  Sex: Female

DRUGS (1)
  1. GABAPENTIN [Suspect]
     Active Substance: GABAPENTIN
     Indication: Back pain
     Dosage: 1200 MILLIGRAM, TID (3X A DAY)
     Route: 065

REACTIONS (5)
  - Psychotic disorder [Fatal]
  - Catatonia [Fatal]
  - Dependence [Unknown]
  - Renal disorder [Unknown]
  - Off label use [Unknown]
